FAERS Safety Report 11919700 (Version 1)
Quarter: 2016Q1

REPORT INFORMATION
  Report Type: Spontaneous
  Country: US (occurrence: None)
  Receive Date: 20160114
  Receipt Date: 20160114
  Transmission Date: 20160526
  Serious: No
  Sender: FDA-Public Use
  Company Number: None

PATIENT
  Age: 30 Year
  Sex: Male
  Weight: 81.65 kg

DRUGS (5)
  1. TRIAMCINOLONE 0.1% [Concomitant]
  2. OTEZLA [Suspect]
     Active Substance: APREMILAST
     Indication: PSORIASIS
     Route: 048
     Dates: start: 20160108
  3. ALEVE [Concomitant]
     Active Substance: NAPROXEN SODIUM
  4. CLOBETASOL 0.05% [Concomitant]
     Active Substance: CLOBETASOL
  5. NAUZENE [Concomitant]
     Active Substance: DEXTROSE\FRUCTOSE\TRISODIUM CITRATE DIHYDRATE

REACTIONS (4)
  - Nausea [None]
  - Diarrhoea [None]
  - Upper respiratory tract infection [None]
  - Tension headache [None]

NARRATIVE: CASE EVENT DATE: 20160109
